FAERS Safety Report 8736617 (Version 3)
Quarter: 2012Q4

REPORT INFORMATION
  Report Type: Report from Study
  Country: GB (occurrence: GB)
  Receive Date: 20120822
  Receipt Date: 20121126
  Transmission Date: 20130627
  Serious: Yes (Life-Threatening, Hospitalization, Other)
  Sender: FDA-Public Use
  Company Number: GB-GLAXOSMITHKLINE-B0820603A

PATIENT
  Age: 81 Year
  Sex: Female
  Weight: 72.6 kg

DRUGS (14)
  1. OFATUMUMAB [Suspect]
     Indication: CHRONIC LYMPHOCYTIC LEUKAEMIA
     Route: 042
     Dates: start: 20120704
  2. BENDAMUSTINE [Suspect]
     Indication: CHRONIC LYMPHOCYTIC LEUKAEMIA
     Route: 042
     Dates: start: 20120704
  3. ACICLOVIR [Suspect]
  4. FLUCONAZOLE [Concomitant]
     Indication: ANTIFUNGAL TREATMENT
     Route: 048
     Dates: start: 20120530, end: 20120627
  5. FUROSEMIDE [Concomitant]
     Indication: FLUID RETENTION
     Dosage: 80MG Per day
     Route: 048
     Dates: start: 20120530
  6. AMILORIDE [Concomitant]
     Indication: FLUID RETENTION
     Dosage: 10MG Per day
     Route: 048
     Dates: start: 20120530
  7. PARACETAMOL [Concomitant]
     Route: 048
  8. CHLORPHENIRAMINE [Concomitant]
  9. LORATADIN [Concomitant]
     Indication: RASH
     Dosage: 10MG Per day
     Route: 048
     Dates: start: 20120627
  10. PREDNISOLONE [Concomitant]
     Indication: RASH
     Dosage: 25MG Per day
     Route: 048
     Dates: start: 20120627, end: 20120704
  11. ALLOPURINOL [Concomitant]
  12. METOCLOPRAMIDE [Concomitant]
     Dosage: 10MG As required
     Route: 048
  13. G-CSF [Concomitant]
  14. OMEPRAZOLE [Concomitant]
     Dosage: 20MG Per day
     Route: 048

REACTIONS (2)
  - Psoriasis [Not Recovered/Not Resolved]
  - Psoriasis [Not Recovered/Not Resolved]
